FAERS Safety Report 6652821-2 (Version None)
Quarter: 2010Q1

REPORT INFORMATION
  Report Type: 
  Country: None (occurrence: None)
  Receive Date: 20100326
  Receipt Date: 20100315
  Transmission Date: 20100710
  Serious: Yes (Other)
  Sender: FDA-Public Use
  Company Number: DE-JNJFOC-20100107428

PATIENT
  Age: 59 Year
  Sex: Female
  Weight: 57 kg

DRUGS (8)
  1. REMICADE [Suspect]
     Indication: SPONDYLITIS
     Route: 042
  2. ENBREL [Suspect]
     Indication: SPONDYLITIS
  3. AZULFIDINE [Suspect]
     Indication: SPONDYLITIS
  4. HUMIRA [Suspect]
     Indication: SPONDYLITIS
  5. CELEBREX [Concomitant]
  6. CALCIMAGON [Concomitant]
  7. MAGNESIUM [Concomitant]
  8. ACTONEL [Concomitant]

REACTIONS (2)
  - CARDIOMEGALY [None]
  - PERICARDIAL EFFUSION [None]
